FAERS Safety Report 4667347-5 (Version None)
Quarter: 2005Q2

REPORT INFORMATION
  Report Type: 
  Country: None (occurrence: None)
  Receive Date: 20050519
  Receipt Date: 20050519
  Transmission Date: 20051028
  Serious: Yes (Hospitalization, Other)
  Sender: FDA-Public Use
  Company Number: None

PATIENT
  Age: 87 Year
  Sex: Female
  Weight: 66 kg

DRUGS (3)
  1. LOVENOX [Suspect]
     Dosage: 60 MG SUBQ X 1
  2. AGGRASTAT [Suspect]
  3. ASPIRIN [Suspect]
     Dosage: 325 MG X 1

REACTIONS (3)
  - BLOOD PRESSURE SYSTOLIC DECREASED [None]
  - HAEMATOCRIT DECREASED [None]
  - HAEMOGLOBIN DECREASED [None]
